FAERS Safety Report 7220020-1 (Version None)
Quarter: 2011Q1

REPORT INFORMATION
  Report Type: 
  Country: None (occurrence: None)
  Receive Date: 20110111
  Receipt Date: 20110107
  Transmission Date: 20110831
  Serious: Yes (Other)
  Sender: FDA-Public Use
  Company Number: Z0007339A

PATIENT
  Age: 20 Year
  Sex: Female
  Weight: 48.6 kg

DRUGS (4)
  1. CYTARABINE [Suspect]
     Indication: LYMPHOMA
     Route: 042
  2. DEXAMETHASONE [Suspect]
     Indication: LYMPHOMA
     Route: 042
     Dates: start: 20110106
  3. OFATUMUMAB [Suspect]
     Indication: LYMPHOMA
     Route: 042
     Dates: start: 20110106, end: 20110106
  4. CISPLATIN [Suspect]
     Indication: LYMPHOMA
     Route: 042

REACTIONS (1)
  - ADVERSE DRUG REACTION [None]
